FAERS Safety Report 4866796-X (Version None)
Quarter: 2005Q4

REPORT INFORMATION
  Report Type: 
  Country: None (occurrence: None)
  Receive Date: 20051222
  Receipt Date: 20051214
  Transmission Date: 20060501
  Serious: Yes (Death, Other)
  Sender: FDA-Public Use
  Company Number: 2005169314

PATIENT
  Age: 60 Year
  Sex: Male

DRUGS (1)
  1. NEURONTIN [Suspect]
     Indication: NEURALGIA
     Dosage: 1200 MG (600 MG, 2 IN 1 D) ORAL
     Route: 048
     Dates: start: 20040201, end: 20050501

REACTIONS (2)
  - FALL [None]
  - FEMUR FRACTURE [None]
